FAERS Safety Report 5605789-1 (Version None)
Quarter: 2008Q1

REPORT INFORMATION
  Report Type: 
  Country: None (occurrence: None)
  Receive Date: 20080129
  Receipt Date: 20080121
  Transmission Date: 20080703
  Serious: Yes (Other)
  Sender: FDA-Public Use
  Company Number: US-ROCHE-538222

PATIENT
  Age: 52 Year
  Sex: Male
  Weight: 68 kg

DRUGS (5)
  1. FUZEON [Suspect]
     Route: 058
  2. FUZEON [Suspect]
     Route: 058
     Dates: start: 20071130
  3. DARUNAVIR [Concomitant]
  4. RALTEGRAVIR [Concomitant]
  5. BACTRIM DS [Concomitant]

REACTIONS (3)
  - INJECTION SITE PAIN [None]
  - MYALGIA [None]
  - PARAESTHESIA [None]
